FAERS Safety Report 4680829-5 (Version None)
Quarter: 2005Q2

REPORT INFORMATION
  Report Type: 
  Country: None (occurrence: None)
  Receive Date: 20050603
  Receipt Date: 20050525
  Transmission Date: 20051028
  Serious: Yes (Life-Threatening, Hospitalization, Other)
  Sender: FDA-Public Use
  Company Number: JP-ABBOTT-05P-087-0301856-00

PATIENT
  Age: 63 Year
  Sex: Male
  Weight: 49 kg

DRUGS (13)
  1. CLARITHROMYCIN [Suspect]
     Indication: UPPER RESPIRATORY TRACT INFLAMMATION
     Route: 048
     Dates: start: 20050314, end: 20050316
  2. CLARITHROMYCIN [Suspect]
     Route: 048
     Dates: start: 20050302, end: 20050304
  3. CLARITHROMYCIN [Suspect]
     Route: 048
     Dates: start: 20050225, end: 20050228
  4. CALCIUM CARBONATE [Concomitant]
     Indication: RENAL FAILURE CHRONIC
     Route: 048
     Dates: start: 20010101
  5. GLYCYRON [Concomitant]
     Indication: HEPATIC CIRRHOSIS
     Route: 048
     Dates: start: 20010101
  6. AZULENE SULFONATE SODIUM L-GLUTAMINE [Concomitant]
     Indication: GASTRITIS
     Route: 048
  7. FUROSEMIDE [Concomitant]
     Indication: RENAL FAILURE CHRONIC
     Route: 048
     Dates: start: 20010101
  8. HALOPERIDOL [Concomitant]
     Indication: INSOMNIA
     Route: 048
     Dates: start: 20010101
  9. ZOPICLONE [Concomitant]
     Indication: INSOMNIA
     Route: 048
     Dates: start: 20010101
  10. NITRAZEPAM [Concomitant]
     Indication: INSOMNIA
     Route: 048
  11. HERBAL PREPARATION [Concomitant]
     Indication: CONVULSION
     Route: 048
     Dates: start: 20010101
  12. BROMHEXINE HYDROCHLORIDE [Concomitant]
     Indication: UPPER RESPIRATORY TRACT INFLAMMATION
     Route: 048
  13. CLOPERASTINE [Concomitant]
     Indication: UPPER RESPIRATORY TRACT INFLAMMATION
     Route: 048

REACTIONS (11)
  - ANGINA PECTORIS [None]
  - APNOEA [None]
  - BRADYCARDIA [None]
  - CARDIAC FAILURE [None]
  - CONVULSION [None]
  - DEPRESSED LEVEL OF CONSCIOUSNESS [None]
  - ELECTROCARDIOGRAM QT PROLONGED [None]
  - HYPOXIA [None]
  - PULMONARY CONGESTION [None]
  - VENTRICULAR FIBRILLATION [None]
  - VENTRICULAR TACHYCARDIA [None]
